FAERS Safety Report 17540124 (Version 2)
Quarter: 2020Q2

REPORT INFORMATION
  Report Type: Report from Study
  Country: AE (occurrence: AE)
  Receive Date: 20200313
  Receipt Date: 20200410
  Transmission Date: 20200713
  Serious: Yes (Death, Hospitalization, Other)
  Sender: FDA-Public Use
  Company Number: NVSC2020AE070644

PATIENT
  Age: 80 Year
  Sex: Female

DRUGS (2)
  1. ENTRESTO [Suspect]
     Active Substance: SACUBITRIL\VALSARTAN
     Indication: CARDIAC FAILURE
     Dosage: 50 MG, BID
     Route: 048
     Dates: start: 20200122
  2. BISOPROLOL [Concomitant]
     Active Substance: BISOPROLOL
     Indication: PRODUCT USED FOR UNKNOWN INDICATION
     Dosage: 5 MG, QD
     Route: 065

REACTIONS (12)
  - Cardiogenic shock [Fatal]
  - Multiple organ dysfunction syndrome [Unknown]
  - Peripheral swelling [Unknown]
  - Septic shock [Fatal]
  - Myocardial ischaemia [Fatal]
  - Chest pain [Unknown]
  - Cardiac failure [Unknown]
  - Cardiac arrest [Unknown]
  - Cellulitis [Fatal]
  - Bradycardia [Unknown]
  - Hypophagia [Unknown]
  - Renal failure [Unknown]

NARRATIVE: CASE EVENT DATE: 20200226
